FAERS Safety Report 6115096-9 (Version None)
Quarter: 2009Q1

REPORT INFORMATION
  Report Type: 
  Country: None (occurrence: None)
  Receive Date: 20090313
  Receipt Date: 20090306
  Transmission Date: 20090719
  Serious: Yes (Hospitalization)
  Sender: FDA-Public Use
  Company Number: B0564728A

PATIENT
  Age: 38 Year
  Sex: Female

DRUGS (3)
  1. ULTIVA [Suspect]
     Dosage: .4MGKM PER DAY
     Route: 042
     Dates: start: 20090223, end: 20090223
  2. ONDANSETRON [Suspect]
     Indication: PROPHYLAXIS
     Dosage: 8MG PER DAY
     Route: 042
     Dates: start: 20090223, end: 20090223
  3. PROPOFOL [Suspect]
     Route: 042
     Dates: start: 20090223, end: 20090223

REACTIONS (1)
  - TREMOR [None]
